FAERS Safety Report 7103178-4 (Version None)
Quarter: 2010Q4

REPORT INFORMATION
  Report Type: 
  Country: None (occurrence: None)
  Receive Date: 20101108
  Receipt Date: 20101015
  Transmission Date: 20110411
  Serious: Yes (Hospitalization)
  Sender: FDA-Public Use
  Company Number: 2010PROUSA00050

PATIENT
  Age: 80 Year
  Sex: Male
  Weight: 83 kg

DRUGS (9)
  1. PROVENGE [Suspect]
     Indication: PROSTATE CANCER METASTATIC
     Dosage: 250 ML, SINGLE, INTRAVENOUS
     Route: 042
     Dates: start: 20100702, end: 20100702
  2. PROVENGE [Suspect]
     Dosage: 250 ML, SINGLE, INTRAVENOUS
     Route: 042
     Dates: start: 20100805, end: 20100805
  3. PROVENGE [Suspect]
     Dosage: 250 ML, SINGLE, INTRAVENOUS
     Route: 042
     Dates: start: 20100819, end: 20100819
  4. ZOMETA [Concomitant]
  5. LEUPROLIDE ACETATE [Concomitant]
  6. ATENOLOL [Concomitant]
  7. LIPITOR [Concomitant]
  8. LISINOPRIL [Concomitant]
  9. PROTONIX [Concomitant]

REACTIONS (3)
  - DIVERTICULUM [None]
  - GASTROENTERITIS RADIATION [None]
  - GASTROINTESTINAL HAEMORRHAGE [None]
